FAERS Safety Report 4572550-9 (Version None)
Quarter: 2005Q1

REPORT INFORMATION
  Report Type: 
  Country: None (occurrence: None)
  Receive Date: 20050208
  Receipt Date: 20050127
  Transmission Date: 20050727
  Serious: Yes (Hospitalization)
  Sender: FDA-Public Use
  Company Number: US-JNJFOC-20050107214

PATIENT
  Sex: Female

DRUGS (11)
  1. INFLIXIMAB [Suspect]
     Indication: RHEUMATOID ARTHRITIS
     Route: 042
  2. COREG [Concomitant]
  3. FUROSEMIDE [Concomitant]
  4. LISINOPRIL [Concomitant]
  5. PLAVIX [Concomitant]
  6. DIGITEK [Concomitant]
  7. KLOR-CON [Concomitant]
  8. LEVOTHYROXINE [Concomitant]
  9. CELEBREX [Concomitant]
  10. PREDNISONE [Concomitant]
  11. ACTONEL [Concomitant]

REACTIONS (2)
  - BLOOD DISORDER [None]
  - INFECTION [None]
